FAERS Safety Report 9238804 (Version 1)
Quarter: 2013Q2

REPORT INFORMATION
  Report Type: Spontaneous
  Country: US (occurrence: None)
  Receive Date: 20130417
  Receipt Date: 20130417
  Transmission Date: 20140414
  Serious: No
  Sender: FDA-Public Use
  Company Number: None

PATIENT
  Age: 80 Year
  Sex: Male
  Weight: 111.7 kg

DRUGS (1)
  1. RITUXIMAB [Suspect]
     Indication: LYMPHOMA
     Dosage: 844 MG  ONCE  IV
     Route: 042
     Dates: start: 20130411, end: 20130411

REACTIONS (3)
  - Rash [None]
  - Urticaria [None]
  - Pruritus [None]
